FAERS Safety Report 14742589 (Version 4)
Quarter: 2018Q3

REPORT INFORMATION
  Report Type: Report from Study
  Country: IT (occurrence: IT)
  Receive Date: 20180410
  Receipt Date: 20180712
  Transmission Date: 20181010
  Serious: Yes (Hospitalization)
  Sender: FDA-Public Use
  Company Number: IT-BAXTER-2018BAX010847

PATIENT
  Age: 45 Year
  Sex: Female
  Weight: 83 kg

DRUGS (6)
  1. ENDOXAN BAXTER [Suspect]
     Active Substance: CYCLOPHOSPHAMIDE
     Indication: CHEMOTHERAPY
     Route: 042
     Dates: start: 20180123, end: 20180123
  2. SOLDESAM [Concomitant]
     Active Substance: DEXAMETHASONE
     Indication: ANTIINFLAMMATORY THERAPY
     Route: 042
     Dates: start: 20180123, end: 20180123
  3. RANITIDINE S.A.L.F [Concomitant]
     Indication: GASTRITIS
     Dosage: 50MG/5 ML, INJECTABLE SOLUTION FOR INTRAVENOUS USE
     Route: 042
     Dates: start: 20180123, end: 20180123
  4. DOCETAXEL ACCORD [Suspect]
     Active Substance: DOCETAXEL
     Indication: CHEMOTHERAPY
     Route: 042
     Dates: start: 20180123, end: 20180123
  5. GRANISETRON KABI [Concomitant]
     Active Substance: GRANISETRON
     Indication: VOMITING
     Route: 042
     Dates: start: 20180123, end: 20180123
  6. TRIMETON [Concomitant]
     Active Substance: CHLORPHENIRAMINE MALEATE
     Indication: VOMITING
     Dosage: STRENGTH: 10 MG/1 ML
     Route: 042
     Dates: start: 20180123, end: 20180123

REACTIONS (4)
  - Pain [Recovered/Resolved]
  - Agitation [Recovered/Resolved]
  - Crying [Recovered/Resolved]
  - Leukopenia [Recovered/Resolved]

NARRATIVE: CASE EVENT DATE: 20180129
